FAERS Safety Report 10314159 (Version 2)
Quarter: 2014Q4

REPORT INFORMATION
  Report Type: Spontaneous
  Country: US (occurrence: None)
  Receive Date: 20140716
  Receipt Date: 20141010
  Transmission Date: 20150528
  Serious: Yes (Disabling)
  Sender: FDA-Public Use
  Company Number: 2014070036

PATIENT
  Age: 71 Year
  Sex: Male

DRUGS (16)
  1. SOLDESAM [Suspect]
     Active Substance: DEXAMETHASONE
     Indication: AMYLOIDOSIS
     Dosage: 8 MG (8 MG, 1 IN 1 TOTAL) INTRAMUSCULAR
     Route: 030
     Dates: start: 20140319, end: 20140319
  2. CARDIOASPIRIN(ACETYLSALICYLIC ACID) [Concomitant]
  3. LUVION (CANRENOIC ACID) [Concomitant]
     Active Substance: CANRENOIC ACID
  4. ACYCLOVIR(ACICLOVIR SODIUM) [Concomitant]
  5. LASIX [Concomitant]
     Active Substance: FUROSEMIDE
  6. LENTOKALIUM  (POTASSIUM CHLORIDE) [Concomitant]
  7. GOLTOR 10/40 MG (SIMVASTATINE) [Concomitant]
  8. ALLOPURINOL (ALLOPURINOL SODIUM) [Concomitant]
  9. BACTRIM [Concomitant]
     Active Substance: SULFAMETHOXAZOLE\TRIMETHOPRIM
  10. ESKIM  (OMEGA-3 TRIGLYCERIDES) [Concomitant]
  11. BARACLUDE(ENTECAVIR) [Concomitant]
  12. BISOPROLOL HEMIFUMARATE (BISOPROLOL HEMIFUMARATE) [Concomitant]
  13. REVLIMID [Suspect]
     Active Substance: LENALIDOMIDE
     Indication: AMYLOIDOSIS
     Route: 048
     Dates: start: 20140319, end: 20140327
  14. MODURETIC  (HYDROCHLOROTHIAZIDE, AMILORIDE HYDROCHLORIDE) [Concomitant]
  15. OMEPRAZOLE (OMEPRAZOLE SODIUM) [Concomitant]
  16. TORASEMID [Suspect]
     Active Substance: TORSEMIDE
     Indication: CHRONIC KIDNEY DISEASE
     Route: 048
     Dates: end: 20140325

REACTIONS (3)
  - Dialysis [None]
  - Drug interaction [None]
  - Acute kidney injury [None]

NARRATIVE: CASE EVENT DATE: 20140327
